FAERS Safety Report 4895444-8 (Version None)
Quarter: 2006Q1

REPORT INFORMATION
  Report Type: 
  Country: None (occurrence: None)
  Receive Date: 20060130
  Receipt Date: 20060112
  Transmission Date: 20060701
  Serious: Yes (Other)
  Sender: FDA-Public Use
  Company Number: BR-GLAXOSMITHKLINE-A0590347A

PATIENT
  Age: 55 Year
  Sex: Female

DRUGS (1)
  1. NIQUITIN [Suspect]
     Route: 062
     Dates: start: 20051107, end: 20051215

REACTIONS (4)
  - AGGRESSION [None]
  - DEPRESSED MOOD [None]
  - DYSPHONIA [None]
  - SKIN IRRITATION [None]
